FAERS Safety Report 18955377 (Version 1)
Quarter: 2021Q1

REPORT INFORMATION
  Report Type: Spontaneous
  Country: US (occurrence: US)
  Receive Date: 20210301
  Receipt Date: 20210301
  Transmission Date: 20210420
  Serious: Yes (Other)
  Sender: FDA-Public Use
  Company Number: US-MYLANLABS-2021M1011791

PATIENT
  Age: 57 Year
  Sex: Male

DRUGS (1)
  1. CLOZAPINE TABLETS, USP [Suspect]
     Active Substance: CLOZAPINE
     Indication: SCHIZOPHRENIA
     Dosage: ONCE DAILY IN AM
     Dates: start: 20200930, end: 20210202

REACTIONS (3)
  - Condition aggravated [Not Recovered/Not Resolved]
  - Granulocytosis [Unknown]
  - Neutropenia [Not Recovered/Not Resolved]
